FAERS Safety Report 4619890-2 (Version None)
Quarter: 2005Q1

REPORT INFORMATION
  Report Type: 
  Country: None (occurrence: None)
  Receive Date: 20050321
  Receipt Date: 20050321
  Transmission Date: 20050727
  Serious: No
  Sender: FDA-Public Use
  Company Number: None

PATIENT
  Age: 58 Year
  Sex: Female
  Weight: 56.6996 kg

DRUGS (1)
  1. LIPITOR [Suspect]
     Dosage: 1 PER DAY

REACTIONS (7)
  - ALOPECIA [None]
  - FATIGUE [None]
  - INSOMNIA [None]
  - MYALGIA [None]
  - NAUSEA [None]
  - PRURITUS [None]
  - STOMACH DISCOMFORT [None]
